FAERS Safety Report 6345529-4 (Version None)
Quarter: 2009Q3

REPORT INFORMATION
  Report Type: 
  Country: None (occurrence: None)
  Receive Date: 20090909
  Receipt Date: 20090908
  Transmission Date: 20100115
  Serious: Yes (Hospitalization)
  Sender: FDA-Public Use
  Company Number: US-BRISTOL-MYERS SQUIBB COMPANY-14769509

PATIENT
  Sex: Male
  Weight: 25 kg

DRUGS (3)
  1. ABILIFY [Suspect]
     Indication: AFFECTIVE DISORDER
     Route: 048
     Dates: start: 20080901
  2. SEROQUEL [Suspect]
  3. CLONIDINE [Concomitant]

REACTIONS (1)
  - PSYCHOTIC DISORDER [None]
